FAERS Safety Report 10243698 (Version 2)
Quarter: 2014Q2

REPORT INFORMATION
  Report Type: Spontaneous
  Country: US (occurrence: US)
  Receive Date: 20140618
  Receipt Date: 20140618
  Transmission Date: 20141212
  Serious: Yes (Hospitalization, Other)
  Sender: FDA-Public Use
  Company Number: US-009507513-2008-173126-NL

PATIENT
  Sex: Female
  Weight: 118 kg

DRUGS (3)
  1. NUVARING [Suspect]
     Indication: CONTRACEPTION
     Dosage: UNK
     Route: 067
     Dates: start: 20050623, end: 20050926
  2. NUVARING [Suspect]
     Indication: MENSTRUATION IRREGULAR
  3. LORATADINE [Concomitant]
     Indication: RHINITIS ALLERGIC
     Dosage: DOSE TEXT: PRN, FREQUENCY: QD
     Dates: start: 20050913

REACTIONS (3)
  - Pulmonary embolism [Recovered/Resolved]
  - Bronchitis [Unknown]
  - Off label use [Unknown]
